FAERS Safety Report 16299125 (Version 7)
Quarter: 2020Q4

REPORT INFORMATION
  Report Type: Spontaneous
  Country: DE (occurrence: DE)
  Receive Date: 20190510
  Receipt Date: 20201007
  Transmission Date: 20210113
  Serious: Yes (Life-Threatening, Hospitalization, Disabling, Other)
  Sender: FDA-Public Use
  Company Number: PHHY2019DE104887

PATIENT
  Age: 69 Year
  Sex: Male
  Weight: 90 kg

DRUGS (70)
  1. DEXAMETHASONE. [Suspect]
     Active Substance: DEXAMETHASONE
     Dosage: 1 MG, QD
     Route: 048
     Dates: start: 20180409, end: 20180515
  2. DEXAMETHASONE. [Suspect]
     Active Substance: DEXAMETHASONE
     Dosage: 0.5 MG, QD
     Route: 048
     Dates: start: 20180612, end: 20180709
  3. DEXAMETHASONE. [Suspect]
     Active Substance: DEXAMETHASONE
     Dosage: 0.5 MG, QD
     Route: 048
     Dates: start: 20180807, end: 20180820
  4. COBIMETINIB. [Suspect]
     Active Substance: COBIMETINIB
     Dosage: 40 MG, QD
     Route: 048
     Dates: start: 20170903, end: 20170903
  5. VEMURAFENIB. [Suspect]
     Active Substance: VEMURAFENIB
     Dosage: 480 MG
     Route: 048
     Dates: start: 20170903, end: 20170903
  6. VOMEX A [Concomitant]
     Active Substance: DIMENHYDRINATE
     Indication: PAIN
     Dosage: IN CASE OF NAUSEA MAX. 3 TIMES PER DAY
     Route: 065
     Dates: start: 20180620, end: 20191119
  7. ASPIRIN. [Concomitant]
     Active Substance: ASPIRIN
     Indication: HYPERTENSION
     Dosage: 100 MG, QD
     Route: 048
     Dates: start: 20140501
  8. MOVICOL [Concomitant]
     Active Substance: POLYETHYLENE GLYCOL 3350\POTASSIUM CHLORIDE\SODIUM BICARBONATE\SODIUM CHLORIDE
     Indication: CONSTIPATION
  9. DEXAMETHASONE. [Suspect]
     Active Substance: DEXAMETHASONE
     Dosage: 1.5 MG, QD
     Route: 048
     Dates: start: 20180724, end: 20180806
  10. DEXAMETHASONE. [Suspect]
     Active Substance: DEXAMETHASONE
     Dosage: 0.5 MG, QD
     Route: 048
     Dates: start: 20180604, end: 20180606
  11. DEXAMETHASONE. [Suspect]
     Active Substance: DEXAMETHASONE
     Dosage: 0.5 MG, QD
     Route: 048
     Dates: start: 20180607, end: 20180611
  12. DEXAMETHASONE. [Suspect]
     Active Substance: DEXAMETHASONE
     Dosage: 0.5 MG, QD
     Route: 048
     Dates: start: 20180724, end: 20180806
  13. METOPROLOL. [Concomitant]
     Active Substance: METOPROLOL
     Indication: VASCULAR GRAFT
     Dosage: 95 MG, Q12H
     Route: 048
     Dates: start: 20140501
  14. RAMIPRIL. [Concomitant]
     Active Substance: RAMIPRIL
     Indication: HYPERTENSION
  15. LEVETIRACETAM. [Concomitant]
     Active Substance: LEVETIRACETAM
     Indication: MALIGNANT MELANOMA
  16. ACETYLSALICYLIC ACID [Concomitant]
     Active Substance: ASPIRIN
     Indication: HYPERTENSION
     Dosage: 100 MG, QD
     Route: 048
     Dates: start: 20140501
  17. DEXAMETHASONE. [Suspect]
     Active Substance: DEXAMETHASONE
     Indication: BRAIN OEDEMA
     Dosage: 1 MG, QD
     Route: 031
     Dates: start: 20170929
  18. COBIMETINIB. [Suspect]
     Active Substance: COBIMETINIB
     Dosage: 40 MG, QD
     Route: 048
     Dates: start: 20180423, end: 20180514
  19. VEMURAFENIB. [Suspect]
     Active Substance: VEMURAFENIB
     Indication: METASTATIC MALIGNANT MELANOMA
     Dosage: DOSE 240 MG X 4 (960 MG)
     Route: 048
     Dates: start: 20170823, end: 20170826
  20. VEMURAFENIB. [Suspect]
     Active Substance: VEMURAFENIB
     Dosage: 960 MG, QD
     Route: 048
     Dates: start: 20170831, end: 20170903
  21. MONO EMBOLEX [Concomitant]
     Active Substance: CERTOPARIN SODIUM
     Indication: PROPHYLAXIS
  22. VOMEX A [Concomitant]
     Active Substance: DIMENHYDRINATE
     Indication: PROPHYLAXIS OF NAUSEA AND VOMITING
     Dosage: 150 MG, QD IN CASE OF NAUSEA MAX. 3 TIMES PER DAY
     Route: 065
     Dates: start: 20180620
  23. RAMIPRIL. [Concomitant]
     Active Substance: RAMIPRIL
     Indication: VASCULAR GRAFT
     Dosage: MOST RECENT DOSE 02/NOV/2017
     Route: 048
     Dates: start: 20140501
  24. ASPIRIN. [Concomitant]
     Active Substance: ASPIRIN
     Indication: VASCULAR GRAFT
  25. DEXAMETHASONE. [Suspect]
     Active Substance: DEXAMETHASONE
     Indication: RETINOPATHY
     Dosage: 4 MG, QD
     Route: 048
     Dates: start: 20170904, end: 20170921
  26. DEXAMETHASONE. [Suspect]
     Active Substance: DEXAMETHASONE
     Dosage: 1 MG, QD
     Route: 048
     Dates: start: 20180807, end: 20180820
  27. VEMURAFENIB. [Suspect]
     Active Substance: VEMURAFENIB
     Dosage: 720 MG
     Route: 048
     Dates: start: 20170907, end: 20180308
  28. VEMURAFENIB. [Suspect]
     Active Substance: VEMURAFENIB
     Dosage: 960 MG
     Route: 048
     Dates: start: 20180314, end: 20180619
  29. VIMPAT [Concomitant]
     Active Substance: LACOSAMIDE
     Indication: EPILEPSY
     Dosage: 100 MG
     Route: 048
     Dates: start: 20190426
  30. DEXAMETHASONE. [Suspect]
     Active Substance: DEXAMETHASONE
     Indication: PROCEDURAL NAUSEA
     Dosage: 12 MG, QD
     Route: 048
     Dates: start: 20170828, end: 20170831
  31. DEXAMETHASONE. [Suspect]
     Active Substance: DEXAMETHASONE
     Indication: PROCEDURAL HEADACHE
     Dosage: 5 MG, QD
     Route: 031
     Dates: start: 20170929
  32. DEXAMETHASONE. [Suspect]
     Active Substance: DEXAMETHASONE
     Dosage: 3 MG, QD
     Route: 048
     Dates: start: 20180612, end: 20180709
  33. DEXAMETHASONE. [Suspect]
     Active Substance: DEXAMETHASONE
     Dosage: UNK, QD
     Route: 048
     Dates: start: 20171103, end: 20190223
  34. COBIMETINIB. [Suspect]
     Active Substance: COBIMETINIB
     Dosage: 40 MG, QD
     Route: 048
     Dates: start: 20170831, end: 20170903
  35. COBIMETINIB. [Suspect]
     Active Substance: COBIMETINIB
     Dosage: 60 MG, QD
     Route: 048
     Dates: start: 20170904, end: 20180423
  36. COBIMETINIB. [Suspect]
     Active Substance: COBIMETINIB
     Dosage: 40 MG, QD
     Route: 048
     Dates: start: 20180424, end: 20180514
  37. VEMURAFENIB. [Suspect]
     Active Substance: VEMURAFENIB
     Dosage: 960 MG, QD
     Route: 048
     Dates: start: 20170827, end: 20170828
  38. VEMURAFENIB. [Suspect]
     Active Substance: VEMURAFENIB
     Dosage: 720 MG
     Route: 048
     Dates: start: 20170904, end: 20170906
  39. VEMURAFENIB. [Suspect]
     Active Substance: VEMURAFENIB
     Dosage: DOSE 240 MG X 4 (960 MG)
     Route: 048
     Dates: start: 20170823, end: 20170826
  40. FOLVERLAN [Concomitant]
     Active Substance: FOLIC ACID
     Indication: PROPHYLAXIS
     Dosage: PROPHYLAXIS OF FOLATE SHORTAGE
     Route: 048
     Dates: start: 20181022, end: 20181203
  41. DEXAMETHASONE. [Suspect]
     Active Substance: DEXAMETHASONE
     Indication: PROCEDURAL VOMITING
     Dosage: 2 MG, QD
     Route: 048
     Dates: start: 20170922, end: 20180123
  42. DEXAMETHASONE. [Suspect]
     Active Substance: DEXAMETHASONE
     Dosage: 1 MG, QD
     Route: 048
     Dates: start: 20180604, end: 20180606
  43. DEXAMETHASONE. [Suspect]
     Active Substance: DEXAMETHASONE
     Dosage: UNK, QD
     Route: 031
     Dates: start: 20170927, end: 20171102
  44. VEMURAFENIB. [Suspect]
     Active Substance: VEMURAFENIB
     Dosage: 1440 MG, QD
     Route: 048
     Dates: start: 20170904, end: 20170906
  45. VEMURAFENIB. [Suspect]
     Active Substance: VEMURAFENIB
     Dosage: 1440 MG, QD
     Route: 048
     Dates: start: 20170907, end: 20180619
  46. VEMURAFENIB. [Suspect]
     Active Substance: VEMURAFENIB
     Dosage: UNK
     Route: 065
  47. LEVETIRACETAM. [Concomitant]
     Active Substance: LEVETIRACETAM
     Indication: METASTASES TO CENTRAL NERVOUS SYSTEM
     Dosage: 1250 MG, Q12H
     Route: 048
  48. PANTOPRAZOLE [Concomitant]
     Active Substance: PANTOPRAZOLE
     Indication: PROPHYLAXIS
     Dosage: 40 MG, QD
     Route: 048
     Dates: start: 20170201
  49. DEXAMETHASONE. [Suspect]
     Active Substance: DEXAMETHASONE
     Indication: VISION BLURRED
     Dosage: 8 MG, QD
     Route: 048
     Dates: start: 20170901, end: 20170903
  50. DEXAMETHASONE. [Suspect]
     Active Substance: DEXAMETHASONE
     Indication: METASTASES TO CENTRAL NERVOUS SYSTEM
     Dosage: 4 MG, QD
     Route: 048
     Dates: start: 20180124, end: 20180220
  51. DEXAMETHASONE. [Suspect]
     Active Substance: DEXAMETHASONE
     Dosage: 4 MG, QD
     Route: 048
     Dates: start: 20180607, end: 20180611
  52. DEXAMETHASONE. [Suspect]
     Active Substance: DEXAMETHASONE
     Dosage: 2 MG, QD
     Route: 048
     Dates: start: 20180710, end: 20180723
  53. COBIMETINIB. [Suspect]
     Active Substance: COBIMETINIB
     Indication: METASTATIC MALIGNANT MELANOMA
     Dosage: DOSE 20 MG X 3 (60 MG)
     Route: 048
     Dates: start: 20170823, end: 20170828
  54. COBIMETINIB. [Suspect]
     Active Substance: COBIMETINIB
     Dosage: 40 MG, QD
     Route: 048
     Dates: start: 20171113, end: 20180423
  55. VEMURAFENIB. [Suspect]
     Active Substance: VEMURAFENIB
     Dosage: 1920 MG, QD
     Route: 048
     Dates: start: 20180823
  56. VEMURAFENIB. [Suspect]
     Active Substance: VEMURAFENIB
     Dosage: 480 MG
     Route: 048
     Dates: start: 20170831, end: 20170903
  57. VEMURAFENIB. [Suspect]
     Active Substance: VEMURAFENIB
     Dosage: 960 MG
     Route: 048
     Dates: start: 20180823
  58. VEMURAFENIB. [Suspect]
     Active Substance: VEMURAFENIB
     Dosage: 480 MG
     Route: 048
     Dates: start: 20170827, end: 20170828
  59. FERRO SANOL [Concomitant]
     Active Substance: FERROUS GLYCINE SULFATE
     Indication: PROPHYLAXIS
     Dosage: PROPHYLAXIS OF IRON
     Route: 048
     Dates: start: 20181022, end: 20181203
  60. SIMVASTATIN. [Concomitant]
     Active Substance: SIMVASTATIN
     Indication: VASCULAR GRAFT
     Dosage: 30 MG, QD
     Route: 048
     Dates: start: 20150501
  61. UNACID [Concomitant]
     Indication: PRODUCT USED FOR UNKNOWN INDICATION
     Dosage: UNK
     Route: 065
     Dates: start: 20180101
  62. VIMPAT [Concomitant]
     Active Substance: LACOSAMIDE
     Indication: PROPHYLAXIS
     Dosage: 200 MG, QD
     Route: 048
     Dates: start: 20190426
  63. MOVICOL [Concomitant]
     Active Substance: POLYETHYLENE GLYCOL 3350\POTASSIUM CHLORIDE\SODIUM BICARBONATE\SODIUM CHLORIDE
     Indication: PROPHYLAXIS
     Dosage: 1381 MG, QD
     Route: 048
     Dates: start: 20190421, end: 20190507
  64. DEXAMETHASONE. [Suspect]
     Active Substance: DEXAMETHASONE
     Dosage: 1 MG, QD
     Route: 048
     Dates: start: 20180516, end: 20180603
  65. DEXAMETHASONE. [Suspect]
     Active Substance: DEXAMETHASONE
     Dosage: 0.5 MG, QD
     Route: 048
     Dates: start: 20180710, end: 20180723
  66. MONO EMBOLEX [Concomitant]
     Active Substance: CERTOPARIN SODIUM
     Indication: PROPHYLAXIS
     Dosage: INDICATION: EMBOLISM PROPHYLAXIS BECAUSE OF CORONARY HEART DISEASE
     Route: 058
     Dates: start: 20170131
  67. METOPROLOL. [Concomitant]
     Active Substance: METOPROLOL
     Indication: HYPERTENSION
  68. SIMVASTATIN. [Concomitant]
     Active Substance: SIMVASTATIN
     Indication: HYPERTENSION
  69. FOLVERLAN [Concomitant]
     Active Substance: FOLIC ACID
     Indication: PROPHYLAXIS
     Dosage: 1 OT, QD (PROPHYLAXIS OF FOLATE SHORTAGE)
     Route: 048
     Dates: start: 20181022
  70. ACETYLSALICYLIC ACID [Concomitant]
     Active Substance: ASPIRIN
     Indication: VASCULAR GRAFT

REACTIONS (37)
  - Cough [Recovered/Resolved]
  - Pyrexia [Recovered/Resolved]
  - Peripheral sensory neuropathy [Unknown]
  - Vision blurred [Recovered/Resolved]
  - Metastases to central nervous system [Unknown]
  - Muscular weakness [Unknown]
  - Cerebral ischaemia [Recovered/Resolved with Sequelae]
  - Subcutaneous abscess [Recovered/Resolved]
  - Lymphoedema [Unknown]
  - Skin hypopigmentation [Not Recovered/Not Resolved]
  - Hyperkeratosis [Unknown]
  - Fatigue [Not Recovered/Not Resolved]
  - Cataract [Not Recovered/Not Resolved]
  - Mucosal dryness [Recovered/Resolved]
  - Retinopathy [Recovered/Resolved with Sequelae]
  - Peripheral nerve lesion [Unknown]
  - Peripheral motor neuropathy [Unknown]
  - Small intestinal haemorrhage [Recovered/Resolved]
  - Skin infection [Unknown]
  - Spinal osteoarthritis [Not Recovered/Not Resolved]
  - Brain oedema [Not Recovered/Not Resolved]
  - Epilepsy [Unknown]
  - Dysgeusia [Recovered/Resolved]
  - Intervertebral disc protrusion [Not Recovered/Not Resolved]
  - Retinopathy [Unknown]
  - Fatigue [Recovered/Resolved]
  - Fatigue [Unknown]
  - Pulmonary embolism [Unknown]
  - Conjunctivitis [Not Recovered/Not Resolved]
  - Dermal cyst [Not Recovered/Not Resolved]
  - Hyperglycaemia [Recovering/Resolving]
  - Pain in extremity [Not Recovered/Not Resolved]
  - Monoparesis [Not Recovered/Not Resolved]
  - Skin mass [Unknown]
  - Photosensitivity reaction [Recovered/Resolved]
  - Epidural lipomatosis [Not Recovered/Not Resolved]
  - Fall [Unknown]

NARRATIVE: CASE EVENT DATE: 20170823
